FAERS Safety Report 25086698 (Version 2)
Quarter: 2025Q3

REPORT INFORMATION
  Report Type: Report from Study
  Country: US (occurrence: US)
  Receive Date: 20250318
  Receipt Date: 20250711
  Transmission Date: 20251020
  Serious: Yes (Hospitalization)
  Sender: ABBVIE
  Company Number: US-ABBVIE-6173177

PATIENT
  Age: 71 Year
  Sex: Female

DRUGS (2)
  1. RINVOQ [Suspect]
     Active Substance: UPADACITINIB
     Indication: Rheumatoid arthritis
     Dosage: STRENGTH: 15MG, LAST ADMIN DATE: FEB 2025
     Route: 048
     Dates: start: 20250213
  2. RINVOQ [Suspect]
     Active Substance: UPADACITINIB
     Indication: Rheumatoid arthritis
     Dosage: STRENGTH: 15MG
     Route: 048
     Dates: start: 202505

REACTIONS (8)
  - Pneumonia [Recovered/Resolved]
  - Influenza [Not Recovered/Not Resolved]
  - Dyspnoea [Unknown]
  - Atrial fibrillation [Recovered/Resolved]
  - Asthenia [Recovered/Resolved]
  - Pulmonary oedema [Recovered/Resolved]
  - Pain [Recovered/Resolved]
  - Body temperature abnormal [Recovered/Resolved]

NARRATIVE: CASE EVENT DATE: 20250101
